APPROVED DRUG PRODUCT: CELECOXIB
Active Ingredient: CELECOXIB
Strength: 400MG
Dosage Form/Route: CAPSULE;ORAL
Application: A213127 | Product #003
Applicant: STRIDES PHARMA GLOBAL PTE LTD
Approved: Apr 29, 2025 | RLD: No | RS: No | Type: DISCN